FAERS Safety Report 6254473-2 (Version None)
Quarter: 2009Q3

REPORT INFORMATION
  Report Type: 
  Country: None (occurrence: None)
  Receive Date: 20090702
  Receipt Date: 20090630
  Transmission Date: 20100115
  Serious: Yes (Hospitalization)
  Sender: FDA-Public Use
  Company Number: KR-BRISTOL-MYERS SQUIBB COMPANY-14684435

PATIENT
  Age: 59 Year
  Sex: Male

DRUGS (5)
  1. IXABEPILONE [Suspect]
     Indication: NON-SMALL CELL LUNG CANCER
     Dosage: STARTED WITH 32MG/M2
     Route: 042
     Dates: start: 20090624, end: 20090624
  2. CARBOPLATIN [Suspect]
     Indication: NON-SMALL CELL LUNG CANCER
     Dosage: STARTED WITH AUC 6
     Route: 042
     Dates: start: 20090624, end: 20090624
  3. NAPROXEN [Concomitant]
     Dates: start: 20090629
  4. CEFTRIAXONE SODIUM [Concomitant]
     Dates: start: 20090629
  5. BENZYDAMINE HCL [Concomitant]
     Dates: start: 20090629

REACTIONS (1)
  - PYREXIA [None]
